FAERS Safety Report 24131884 (Version 1)
Quarter: 2024Q3

REPORT INFORMATION
  Report Type: Spontaneous
  Country: US (occurrence: None)
  Receive Date: 20240724
  Receipt Date: 20240724
  Transmission Date: 20241016
  Serious: Yes (Hospitalization)
  Sender: Public
  Company Number: None

PATIENT
  Age: 82 Year
  Sex: Male
  Weight: 81.3 kg

DRUGS (4)
  1. CISPLATIN [Suspect]
     Active Substance: CISPLATIN
     Dates: end: 20240703
  2. Ifosdamide [Concomitant]
     Dates: start: 20240703
  3. TAXOL [Suspect]
     Active Substance: PACLITAXEL
     Dates: end: 20240701
  4. Daleparin [Concomitant]

REACTIONS (3)
  - Presyncope [None]
  - Duodenal ulcer haemorrhage [None]
  - Haemoglobin decreased [None]

NARRATIVE: CASE EVENT DATE: 20240716
